FAERS Safety Report 5147669-4 (Version None)
Quarter: 2006Q4

REPORT INFORMATION
  Report Type: 
  Country: None (occurrence: None)
  Receive Date: 20061110
  Receipt Date: 20061027
  Transmission Date: 20070319
  Serious: Yes (Hospitalization)
  Sender: FDA-Public Use
  Company Number: US-KINGPHARMUSA00001-K200601357

PATIENT
  Age: 98 Year
  Sex: Male

DRUGS (6)
  1. ALTACE [Suspect]
     Dosage: 1.25 MG, UNK
     Route: 048
  2. ACETAMINOPHEN W/ PROPOXYPHENE HCL [Suspect]
     Indication: BACK PAIN
     Dosage: 6 U, UNK
     Route: 048
     Dates: start: 20051015, end: 20051031
  3. LASILIX                            /00032601/ [Suspect]
     Dosage: 20 MG, UNK
     Route: 048
  4. IMOVANE [Suspect]
     Dosage: 1 U, UNK
     Route: 048
  5. ASPEGIC                            /00002701/ [Suspect]
     Dosage: 100 MG, UNK
     Route: 048
  6. ATHYMIL [Suspect]
     Dosage: 30 MG, UNK
     Route: 048

REACTIONS (8)
  - ALANINE AMINOTRANSFERASE INCREASED [None]
  - ASPARTATE AMINOTRANSFERASE INCREASED [None]
  - BACK PAIN [None]
  - BLOOD ALKALINE PHOSPHATASE INCREASED [None]
  - CHOLESTASIS [None]
  - FALL [None]
  - GAMMA-GLUTAMYLTRANSFERASE INCREASED [None]
  - GENERAL PHYSICAL HEALTH DETERIORATION [None]
